FAERS Safety Report 5167090-2 (Version None)
Quarter: 2006Q4

REPORT INFORMATION
  Report Type: 
  Country: None (occurrence: None)
  Receive Date: 20061207
  Receipt Date: 20061201
  Transmission Date: 20070319
  Serious: Yes (Hospitalization)
  Sender: FDA-Public Use
  Company Number: US-GLAXOSMITHKLINE-A0630332A

PATIENT
  Sex: Female

DRUGS (4)
  1. VALTREX [Suspect]
     Dosage: 1CAPL THREE TIMES PER DAY
     Route: 048
     Dates: start: 20050101, end: 20061001
  2. ZOVIRAX [Concomitant]
  3. PREDNISOLONE [Concomitant]
  4. NEUPOGEN [Concomitant]

REACTIONS (6)
  - EAR INFECTION [None]
  - HERPES VIRUS INFECTION [None]
  - NEUTROPENIA [None]
  - PHARYNGITIS [None]
  - SEPSIS [None]
  - WHITE BLOOD CELL COUNT DECREASED [None]
